FAERS Safety Report 8579073-0 (Version None)
Quarter: 2012Q3

REPORT INFORMATION
  Report Type: 
  Country: None (occurrence: None)
  Receive Date: 20120808
  Receipt Date: 20120725
  Transmission Date: 20120928
  Serious: Yes (Death, Life-Threatening, Hospitalization, Other)
  Sender: FDA-Public Use
  Company Number: JP-ROCHE-1075950

PATIENT
  Sex: Female
  Weight: 50 kg

DRUGS (5)
  1. MUCOSTA [Concomitant]
     Indication: PROPHYLAXIS AGAINST GASTROINTESTINAL ULCER
     Dosage: CONCOMITANTLY ADMINISTERED EVERY THREE TO FOUR WEEKS
     Route: 048
     Dates: end: 20120625
  2. AVASTIN [Suspect]
     Indication: BREAST CANCER METASTATIC
     Route: 041
     Dates: start: 20120425, end: 20120522
  3. PACLITAXEL [Concomitant]
     Indication: BREAST CANCER METASTATIC
     Route: 041
     Dates: start: 20120425, end: 20120522
  4. LOXONIN [Concomitant]
     Indication: PAIN
     Route: 048
     Dates: end: 20120625
  5. PURSENNID [Concomitant]
     Indication: CONSTIPATION
     Route: 048
     Dates: end: 20120625

REACTIONS (6)
  - BREAST CANCER METASTATIC [None]
  - ANAEMIA [None]
  - PULMONARY INFARCTION [None]
  - TUMOUR HAEMORRHAGE [None]
  - PAIN [None]
  - NAUSEA [None]
